FAERS Safety Report 10985956 (Version 1)
Quarter: 2015Q2

REPORT INFORMATION
  Report Type: Spontaneous
  Country: BE (occurrence: BE)
  Receive Date: 20150404
  Receipt Date: 20150404
  Transmission Date: 20150821
  Serious: Yes (Other)
  Sender: FDA-Public Use
  Company Number: PHHY2015BE030476

PATIENT
  Sex: Female

DRUGS (2)
  1. ASAFLOW [Concomitant]
     Active Substance: ASPIRIN
     Indication: CARDIOVASCULAR EVENT PROPHYLAXIS
     Dosage: 80 MG, QD
     Route: 048
  2. TASIGNA [Suspect]
     Active Substance: NILOTINIB
     Indication: THROMBOCYTOPENIA
     Dosage: 400 MG, BID
     Route: 048
     Dates: start: 201409

REACTIONS (3)
  - Aphasia [Unknown]
  - Speech disorder [Recovering/Resolving]
  - Off label use [Unknown]
